FAERS Safety Report 7905432-2 (Version None)
Quarter: 2011Q4

REPORT INFORMATION
  Report Type: 
  Country: None (occurrence: None)
  Receive Date: 20111109
  Receipt Date: 20111027
  Transmission Date: 20120403
  Serious: Yes (Hospitalization)
  Sender: FDA-Public Use
  Company Number: JP-MYLANLABS-2011S1022690

PATIENT
  Age: 32 Year
  Sex: Female

DRUGS (5)
  1. IMIPRAMINE [Suspect]
     Dosage: TOTAL DOSE 3650MG (146 TABLETS)
     Route: 048
  2. FLUNITRAZEPAM [Suspect]
     Dosage: TOTAL DOSE 20MG (10 TABLETS)
     Route: 048
  3. TRIAZOLAM [Suspect]
     Dosage: TOTAL DOSE 3.25MG (13 TABLETS)
     Route: 048
  4. CLOXAZOLAM [Suspect]
     Dosage: TOTAL DOSE 172MG (172 TABLETS)
     Route: 048
  5. BROMAZEPAM [Suspect]
     Dosage: TOTAL DOSE 50MG (10 TABLETS)
     Route: 048

REACTIONS (3)
  - OVERDOSE [None]
  - VENTRICULAR TACHYCARDIA [None]
  - SOMNOLENCE [None]
